FAERS Safety Report 14208483 (Version 1)
Quarter: 2017Q4

REPORT INFORMATION
  Report Type: Spontaneous
  Country: US (occurrence: None)
  Receive Date: 20171120
  Receipt Date: 20171120
  Transmission Date: 20180321
  Serious: Yes (Other)
  Sender: FDA-Public Use
  Company Number: None

PATIENT
  Age: 11 Year
  Sex: Male

DRUGS (14)
  1. PENICILLIN [Concomitant]
     Active Substance: PENICILLIN
  2. CETRIZINE [Concomitant]
     Active Substance: CETIRIZINE HYDROCHLORIDE
  3. AMITRIPTYLIN [Concomitant]
     Active Substance: AMITRIPTYLINE
  4. CEFDINER [Concomitant]
  5. METOPROLOL TARTRATE. [Concomitant]
     Active Substance: METOPROLOL TARTRATE
  6. NEUPOGEN [Concomitant]
     Active Substance: FILGRASTIM
  7. OXYCODONE [Concomitant]
     Active Substance: OXYCODONE
  8. DROXIA [Concomitant]
     Active Substance: HYDROXYUREA
  9. SMZ/TMP [Concomitant]
     Active Substance: SULFAMETHOXAZOLE\TRIMETHOPRIM
  10. AVASTIN [Concomitant]
     Active Substance: BEVACIZUMAB
  11. ECITALOPRAM [Concomitant]
  12. EMEND [Concomitant]
     Active Substance: APREPITANT
  13. AMLODIPINE [Concomitant]
     Active Substance: AMLODIPINE BESYLATE
  14. JADENU [Suspect]
     Active Substance: DEFERASIROX
     Indication: SICKLE CELL ANAEMIA
     Route: 048
     Dates: start: 20170928

REACTIONS (2)
  - Hepatic enzyme increased [None]
  - Renal disorder [None]

NARRATIVE: CASE EVENT DATE: 201711
